FAERS Safety Report 16874277 (Version 1)
Quarter: 2019Q4

REPORT INFORMATION
  Report Type: Spontaneous
  Country: US (occurrence: US)
  Receive Date: 20191001
  Receipt Date: 20191001
  Transmission Date: 20200122
  Serious: Yes (Hospitalization)
  Sender: FDA-Public Use
  Company Number: US-HORIZON-VIM-0352-2019

PATIENT
  Age: 60 Year
  Sex: Female

DRUGS (8)
  1. VIMOVO [Suspect]
     Active Substance: ESOMEPRAZOLE MAGNESIUM\NAPROXEN
     Indication: OSTEOARTHRITIS
     Dosage: 1 TAB BID
     Dates: start: 20180913, end: 20190911
  2. VITAMIN D3 [Concomitant]
     Active Substance: CHOLECALCIFEROL
  3. GLIPIZIDE. [Concomitant]
     Active Substance: GLIPIZIDE
  4. VICTOZA [Concomitant]
     Active Substance: LIRAGLUTIDE
  5. CYMBALTA [Concomitant]
     Active Substance: DULOXETINE HYDROCHLORIDE
  6. VITAMIN B6 [Concomitant]
     Active Substance: PYRIDOXINE HYDROCHLORIDE
  7. IRON [Concomitant]
     Active Substance: IRON
  8. ATORVASTATIN [Concomitant]
     Active Substance: ATORVASTATIN

REACTIONS (2)
  - Sepsis [Recovering/Resolving]
  - Renal function test abnormal [Recovering/Resolving]
